FAERS Safety Report 4289162-7 (Version None)
Quarter: 2004Q1

REPORT INFORMATION
  Report Type: 
  Country: None (occurrence: None)
  Receive Date: 20040205
  Receipt Date: 20040113
  Transmission Date: 20041129
  Serious: Yes (Death)
  Sender: FDA-Public Use
  Company Number: WAES 0312DEU00123

PATIENT

DRUGS (1)
  1. CANCIDAS [Suspect]
     Indication: INFECTION PROPHYLAXIS
     Dosage: 70 MG
     Route: 042

REACTIONS (4)
  - HEPATOTOXICITY [None]
  - MULTI-ORGAN FAILURE [None]
  - PNEUMONIA [None]
  - SEPSIS [None]
